FAERS Safety Report 24854557 (Version 3)
Quarter: 2025Q1

REPORT INFORMATION
  Report Type: Spontaneous
  Country: US (occurrence: US)
  Receive Date: 20250117
  Receipt Date: 20250225
  Transmission Date: 20250409
  Serious: No
  Sender: JOHNSON AND JOHNSON
  Company Number: US-JNJFOC-20241267612

PATIENT
  Age: 63 Year
  Sex: Male

DRUGS (25)
  1. TREMFYA [Suspect]
     Active Substance: GUSELKUMAB
     Indication: Psoriatic arthropathy
     Route: 058
  2. TREMFYA [Suspect]
     Active Substance: GUSELKUMAB
  3. ACETAMINOPHEN [Concomitant]
     Active Substance: ACETAMINOPHEN
  4. ADVAIR HFA [Concomitant]
     Active Substance: FLUTICASONE PROPIONATE\SALMETEROL XINAFOATE
  5. ALBUTEROL [Concomitant]
     Active Substance: ALBUTEROL
  6. AMLODIPINE [Concomitant]
     Active Substance: AMLODIPINE BESYLATE
  7. BISACODYL [Concomitant]
     Active Substance: BISACODYL
  8. CYCLOBENZAPRINE [Concomitant]
     Active Substance: CYCLOBENZAPRINE
  9. DICLOFENAC ATID [Concomitant]
  10. FERROUS SULFATE [Concomitant]
     Active Substance: FERROUS SULFATE
  11. LIDOCAINE [Concomitant]
     Active Substance: LIDOCAINE
  12. METOPROLOL [Concomitant]
     Active Substance: METOPROLOL
  13. MIRALAX [Concomitant]
     Active Substance: POLYETHYLENE GLYCOL 3350
  14. NARCAN [Concomitant]
     Active Substance: NALOXONE HYDROCHLORIDE
  15. NORCO [Concomitant]
     Active Substance: ACETAMINOPHEN\HYDROCODONE BITARTRATE
  16. SENNA+ [Concomitant]
  17. SUCRALFATE [Concomitant]
     Active Substance: SUCRALFATE
  18. VITAMIN B12 [Concomitant]
     Active Substance: CYANOCOBALAMIN
  19. ATORVASTATIN [Concomitant]
     Active Substance: ATORVASTATIN
  20. FAMOTIDINE [Concomitant]
     Active Substance: FAMOTIDINE
  21. FOLIC ACID [Concomitant]
     Active Substance: FOLIC ACID
  22. KEPPRA [Concomitant]
     Active Substance: LEVETIRACETAM
  23. LAMOTRIGINE [Concomitant]
     Active Substance: LAMOTRIGINE
  24. PROMETHAZINE [Concomitant]
     Active Substance: PROMETHAZINE HYDROCHLORIDE
  25. VALSARTAN [Concomitant]
     Active Substance: VALSARTAN

REACTIONS (2)
  - Product dose omission issue [Unknown]
  - Needle issue [Unknown]

NARRATIVE: CASE EVENT DATE: 20241220
